FAERS Safety Report 7989798-3 (Version None)
Quarter: 2011Q4

REPORT INFORMATION
  Report Type: 
  Country: None (occurrence: None)
  Receive Date: 20111219
  Receipt Date: 20110613
  Transmission Date: 20120403
  Serious: Yes (Hospitalization)
  Sender: FDA-Public Use
  Company Number: US-ASTRAZENECA-2011SE35851

PATIENT
  Sex: Female

DRUGS (7)
  1. CRESTOR [Suspect]
     Route: 048
     Dates: start: 20110504
  2. NORVASC [Concomitant]
  3. FOSAMAX [Concomitant]
  4. CRESTOR [Suspect]
     Route: 048
  5. COREG [Concomitant]
  6. ZESTRIL [Concomitant]
  7. LEVOXYL [Concomitant]

REACTIONS (2)
  - RASH MACULO-PAPULAR [None]
  - RHABDOMYOLYSIS [None]
